FAERS Safety Report 6560091-9 (Version None)
Quarter: 2010Q1

REPORT INFORMATION
  Report Type: 
  Country: None (occurrence: None)
  Receive Date: 20100129
  Receipt Date: 20090917
  Transmission Date: 20100710
  Serious: No
  Sender: FDA-Public Use
  Company Number: US-ABBOTT-09P-163-0598132-00

PATIENT
  Sex: Female
  Weight: 52.664 kg

DRUGS (6)
  1. HUMIRA [Suspect]
     Indication: BONE DISORDER
     Route: 058
     Dates: start: 20060101, end: 20060101
  2. HUMIRA [Suspect]
     Route: 058
     Dates: start: 20070101
  3. METHOTREXATE [Concomitant]
     Indication: BONE DISORDER
     Route: 058
  4. PAIN PILLS [Concomitant]
     Indication: BONE DISORDER
  5. JANUVIA [Concomitant]
     Indication: DIABETES MELLITUS
     Route: 048
  6. METOPROLOL [Concomitant]
     Indication: HYPERTENSION
     Route: 048

REACTIONS (6)
  - BONE PAIN [None]
  - DRUG DOSE OMISSION [None]
  - INSOMNIA [None]
  - MUSCULOSKELETAL STIFFNESS [None]
  - PAIN [None]
  - VERTIGO [None]
